FAERS Safety Report 6510195-1 (Version None)
Quarter: 2009Q4

REPORT INFORMATION
  Report Type: 
  Country: None (occurrence: None)
  Receive Date: 20091221
  Receipt Date: 20091221
  Transmission Date: 20100525
  Serious: Yes (Other)
  Sender: FDA-Public Use
  Company Number: None

PATIENT
  Age: 55 Year
  Sex: Male
  Weight: 65.7716 kg

DRUGS (6)
  1. PAXIL [Suspect]
  2. LEXAPRO [Suspect]
  3. PRISTIQ [Suspect]
  4. EFFEXOR [Suspect]
  5. LAMICTAL [Suspect]
  6. TOPAMAX [Suspect]

REACTIONS (2)
  - IMPAIRED WORK ABILITY [None]
  - MOTOR DYSFUNCTION [None]
